FAERS Safety Report 13725090 (Version 1)
Quarter: 2017Q3

REPORT INFORMATION
  Report Type: Spontaneous
  Country: US (occurrence: US)
  Receive Date: 20170706
  Receipt Date: 20170706
  Transmission Date: 20171127
  Serious: No
  Sender: FDA-Public Use
  Company Number: US-PFIZER INC-2017286948

PATIENT
  Age: 57 Year
  Sex: Female
  Weight: 65.77 kg

DRUGS (5)
  1. IBUPROFEN. [Suspect]
     Active Substance: IBUPROFEN
     Indication: BACK PAIN
     Dosage: UNK
     Dates: end: 201706
  2. IBUPROFEN. [Suspect]
     Active Substance: IBUPROFEN
     Indication: UPPER LIMB FRACTURE
  3. ADVIL [Suspect]
     Active Substance: IBUPROFEN
     Indication: PAIN
     Dosage: 200 MG, AS NEEDED
  4. ADVIL [Suspect]
     Active Substance: IBUPROFEN
     Indication: HEADACHE
  5. IBUPROFEN. [Suspect]
     Active Substance: IBUPROFEN
     Indication: ARTHRITIS

REACTIONS (1)
  - Drug ineffective [Unknown]
